FAERS Safety Report 10155835 (Version 1)
Quarter: 2014Q2

REPORT INFORMATION
  Report Type: Spontaneous
  Country: CA (occurrence: CA)
  Receive Date: 20140506
  Receipt Date: 20140506
  Transmission Date: 20141212
  Serious: Yes (Other)
  Sender: FDA-Public Use
  Company Number: CA-PFIZER INC-2014120758

PATIENT
  Sex: Male

DRUGS (2)
  1. DILANTIN [Suspect]
     Dosage: 200 MG, 1X/DAY
     Route: 048
  2. DILANTIN [Suspect]
     Dosage: 100 MG, 2X/DAY
     Route: 042

REACTIONS (2)
  - Dysphagia [Unknown]
  - Feeding tube complication [Unknown]
